FAERS Safety Report 13405809 (Version 15)
Quarter: 2019Q4

REPORT INFORMATION
  Report Type: Spontaneous
  Country: US (occurrence: US)
  Receive Date: 20170405
  Receipt Date: 20191118
  Transmission Date: 20200122
  Serious: Yes (Other)
  Sender: FDA-Public Use
  Company Number: US-PFIZER INC-2017145600

PATIENT
  Age: 59 Year
  Sex: Female

DRUGS (5)
  1. XALKORI [Suspect]
     Active Substance: CRIZOTINIB
     Dosage: 250 MG, 2X/DAY
     Route: 048
     Dates: start: 201612
  2. XALKORI [Suspect]
     Active Substance: CRIZOTINIB
     Indication: LUNG NEOPLASM MALIGNANT
     Dosage: 250 MG, 2X/DAY
     Route: 048
     Dates: start: 2014
  3. XALKORI [Suspect]
     Active Substance: CRIZOTINIB
     Dosage: 250 MG, 2X/DAY
     Route: 048
  4. XALKORI [Suspect]
     Active Substance: CRIZOTINIB
     Dosage: 500 MG, 2X/DAY
     Dates: start: 201512
  5. XALKORI [Suspect]
     Active Substance: CRIZOTINIB
     Dosage: 250 MG, 1X/DAY
     Route: 048

REACTIONS (25)
  - Vomiting [Not Recovered/Not Resolved]
  - Diarrhoea [Unknown]
  - Neoplasm progression [Unknown]
  - Eating disorder [Unknown]
  - Hepatic cyst [Not Recovered/Not Resolved]
  - Salivary hypersecretion [Unknown]
  - Taste disorder [Unknown]
  - Gastrooesophageal reflux disease [Unknown]
  - Decreased appetite [Unknown]
  - Myocardial strain [Unknown]
  - Nausea [Not Recovered/Not Resolved]
  - Abdominal discomfort [Unknown]
  - Somnolence [Unknown]
  - Insomnia [Unknown]
  - Feeling abnormal [Unknown]
  - Oesophageal pain [Unknown]
  - Seizure [Not Recovered/Not Resolved]
  - Product dose omission [Unknown]
  - Amnesia [Not Recovered/Not Resolved]
  - Retching [Not Recovered/Not Resolved]
  - Muscular weakness [Unknown]
  - Dyspnoea [Unknown]
  - Toxicity to various agents [Unknown]
  - Visual impairment [Unknown]
  - Asthenia [Unknown]
